FAERS Safety Report 6529721-1 (Version None)
Quarter: 2010Q1

REPORT INFORMATION
  Report Type: 
  Country: None (occurrence: None)
  Receive Date: 20100107
  Receipt Date: 20091231
  Transmission Date: 20100710
  Serious: Yes (Death)
  Sender: FDA-Public Use
  Company Number: US-PFIZER INC-2009316485

PATIENT
  Sex: Male

DRUGS (1)
  1. CAMPTOSAR [Suspect]
     Dosage: 330 MG, EVERY 3 WEEKS
     Route: 042

REACTIONS (1)
  - DEATH [None]
